FAERS Safety Report 5166939-7 (Version None)
Quarter: 2006Q4

REPORT INFORMATION
  Report Type: 
  Country: None (occurrence: None)
  Receive Date: 20061207
  Receipt Date: 20061129
  Transmission Date: 20070319
  Serious: Yes (Hospitalization)
  Sender: FDA-Public Use
  Company Number: US-SANOFI-SYNTHELABO-F01200602440

PATIENT
  Sex: Male
  Weight: 89.81 kg

DRUGS (2)
  1. TAXOTERE [Suspect]
     Route: 042
     Dates: start: 20061107, end: 20061107
  2. OXALIPLATIN [Suspect]
     Indication: BLADDER CANCER
     Route: 042
     Dates: start: 20061107, end: 20061107

REACTIONS (3)
  - ATRIAL FLUTTER [None]
  - PYREXIA [None]
  - URINARY TRACT INFECTION [None]
